FAERS Safety Report 4891992-5 (Version None)
Quarter: 2006Q1

REPORT INFORMATION
  Report Type: 
  Country: None (occurrence: None)
  Receive Date: 20060123
  Receipt Date: 20060110
  Transmission Date: 20060701
  Serious: Yes (Disabling)
  Sender: FDA-Public Use
  Company Number: FR200601001484

PATIENT
  Age: 51 Year
  Sex: Male

DRUGS (2)
  1. GEMZAR [Suspect]
     Indication: METASTASES TO CENTRAL NERVOUS SYSTEM
     Dosage: 1250MG/M2 OTHER INTRAVENOUS
     Route: 042
     Dates: start: 20050617, end: 20051129
  2. CARBOPLATIN [Concomitant]

REACTIONS (4)
  - BLINDNESS [None]
  - HAEMATOTOXICITY [None]
  - OPTIC NEURITIS RETROBULBAR [None]
  - RADIATION INJURY [None]
